FAERS Safety Report 11646414 (Version 1)
Quarter: 2015Q4

REPORT INFORMATION
  Report Type: Spontaneous
  Country: US (occurrence: US)
  Receive Date: 20151020
  Receipt Date: 20151020
  Transmission Date: 20160304
  Serious: No
  Sender: FDA-Public Use
  Company Number: US-ROCHE-1626194

PATIENT
  Age: 83 Year
  Sex: Male

DRUGS (7)
  1. METHIMAZOLE. [Concomitant]
     Active Substance: METHIMAZOLE
  2. ALBUTEROL. [Concomitant]
     Active Substance: ALBUTEROL
  3. DIGOXIN. [Concomitant]
     Active Substance: DIGOXIN
  4. CARDIZEM [Concomitant]
     Active Substance: DILTIAZEM HYDROCHLORIDE
  5. ESBRIET [Suspect]
     Active Substance: PIRFENIDONE
     Indication: IDIOPATHIC PULMONARY FIBROSIS
     Dosage: 3 CAPS, 3X DAILY
     Route: 048
     Dates: start: 20150318
  6. TORSEMIDE. [Concomitant]
     Active Substance: TORSEMIDE
  7. ADVAIR HFA [Concomitant]
     Active Substance: FLUTICASONE PROPIONATE\SALMETEROL XINAFOATE

REACTIONS (3)
  - Fatigue [Unknown]
  - Gastrooesophageal reflux disease [Unknown]
  - Weight decreased [Unknown]
